FAERS Safety Report 5457694-1 (Version None)
Quarter: 2007Q3

REPORT INFORMATION
  Report Type: 
  Country: None (occurrence: None)
  Receive Date: 20070918
  Receipt Date: 20070907
  Transmission Date: 20080115
  Serious: Yes (Other)
  Sender: FDA-Public Use
  Company Number: US-PFIZER INC-2007075199

PATIENT
  Sex: Male
  Weight: 81.818 kg

DRUGS (3)
  1. CHANTIX [Suspect]
     Indication: SMOKING CESSATION THERAPY
     Route: 048
     Dates: start: 20070601, end: 20070801
  2. ZOCOR [Concomitant]
     Indication: BLOOD CHOLESTEROL
     Route: 048
  3. LOTREL [Concomitant]
     Indication: HYPERTENSION
     Route: 048

REACTIONS (2)
  - BLOOD GLUCOSE DECREASED [None]
  - IRRITABLE BOWEL SYNDROME [None]
